FAERS Safety Report 8960801 (Version 1)
Quarter: 2012Q4

REPORT INFORMATION
  Report Type: 
  Country: LT (occurrence: LT)
  Receive Date: 20121213
  Receipt Date: 20121213
  Transmission Date: 20130627
  Serious: Yes (Hospitalization)
  Sender: FDA-Public Use
  Company Number: LT-009507513-0911USA01068

PATIENT
  Age: 62 Year
  Sex: Female
  Weight: 89.5 kg

DRUGS (5)
  1. PIOGLITAZONE HYDROCHLORIDE [Suspect]
     Indication: TYPE 2 DIABETES MELLITUS
     Dosage: 30 mg, qd
     Route: 048
     Dates: start: 20090422, end: 20091102
  2. JANUVIA [Suspect]
     Indication: TYPE 2 DIABETES MELLITUS
     Dosage: 100 mg, qd
     Route: 048
     Dates: start: 20090422, end: 20090519
  3. ACCUPRO [Concomitant]
     Indication: HYPERTENSION
     Dosage: 20 mg, qd
     Route: 048
     Dates: start: 20090129, end: 20091102
  4. ACCUZIDE [Concomitant]
     Indication: HYPERTENSION
     Dosage: 1 DF, qd
     Route: 048
     Dates: start: 20090129, end: 20091102
  5. FINLEPSIN [Concomitant]
     Indication: EPILEPSY
     Dosage: 200 mg, PRN
     Dates: start: 20050915

REACTIONS (6)
  - Angina unstable [Recovered/Resolved]
  - Cardiac failure [Recovered/Resolved]
  - Atrial fibrillation [Recovered/Resolved]
  - Dyslipidaemia [Unknown]
  - Condition aggravated [Recovered/Resolved]
  - Hypertension [Recovered/Resolved]
